FAERS Safety Report 4865986-X (Version None)
Quarter: 2005Q4

REPORT INFORMATION
  Report Type: 
  Country: None (occurrence: None)
  Receive Date: 20051226
  Receipt Date: 20051221
  Transmission Date: 20060501
  Serious: Yes (Death)
  Sender: FDA-Public Use
  Company Number: US-SANOFI-SYNTHELABO-F03200500191

PATIENT

DRUGS (4)
  1. OXALIPLATIN [Suspect]
     Indication: COLON CANCER METASTATIC
     Route: 042
  2. IRINOTECAN [Suspect]
     Indication: COLON CANCER METASTATIC
     Route: 042
  3. CAPECITABINE [Suspect]
     Indication: COLON CANCER METASTATIC
     Dosage: UNK
     Route: 048
  4. CISPLATIN [Suspect]
     Indication: COLON CANCER METASTATIC
     Route: 042

REACTIONS (1)
  - DEATH [None]
